FAERS Safety Report 6491956-4 (Version None)
Quarter: 2009Q4

REPORT INFORMATION
  Report Type: 
  Country: None (occurrence: None)
  Receive Date: 20091208
  Receipt Date: 20090929
  Transmission Date: 20100525
  Serious: Yes (Hospitalization)
  Sender: FDA-Public Use
  Company Number: 8055367

PATIENT
  Sex: Male
  Weight: 70 kg

DRUGS (15)
  1. KEPPRA [Suspect]
     Dosage: 1000 MG /D
     Dates: end: 20090714
  2. PRIMIDONE [Concomitant]
  3. PHENYTOIN [Concomitant]
  4. TOPIRAMATE [Concomitant]
  5. VALPROIC ACID [Concomitant]
  6. NEURONTIN [Concomitant]
  7. TETRAZEPAM [Concomitant]
  8. ACETYLCYSTEINE [Concomitant]
  9. NITROFURANTOIN [Concomitant]
  10. PANTOPRAZOLE [Concomitant]
  11. TOPAMAX [Concomitant]
  12. ERGENYL [Concomitant]
  13. FENTANYL-100 [Concomitant]
  14. SCOPODERM [Concomitant]
  15. CLEXANE [Concomitant]

REACTIONS (15)
  - ANTICONVULSANT DRUG LEVEL BELOW THERAPEUTIC [None]
  - APATHY [None]
  - BACTERIAL DISEASE CARRIER [None]
  - DISTURBANCE IN ATTENTION [None]
  - DYSPHAGIA [None]
  - GAMMA-GLUTAMYLTRANSFERASE INCREASED [None]
  - GRAND MAL CONVULSION [None]
  - HEPATIC FAILURE [None]
  - HEPATOTOXICITY [None]
  - HYPOXIC ENCEPHALOPATHY [None]
  - PNEUMONIA [None]
  - PSYCHOTIC DISORDER DUE TO A GENERAL MEDICAL CONDITION [None]
  - QUADRIPARESIS [None]
  - STATUS EPILEPTICUS [None]
  - TONIC CONVULSION [None]
